FAERS Safety Report 21732666 (Version 2)
Quarter: 2023Q1

REPORT INFORMATION
  Report Type: Spontaneous
  Country: ES (occurrence: ES)
  Receive Date: 20221215
  Receipt Date: 20230106
  Transmission Date: 20230418
  Serious: Yes (Hospitalization)
  Sender: FDA-Public Use
  Company Number: None

PATIENT
  Age: 61 Year
  Sex: Female

DRUGS (5)
  1. OXALIPLATIN [Suspect]
     Active Substance: OXALIPLATIN
     Indication: Adenocarcinoma of colon
     Dates: start: 20220425, end: 20220425
  2. CAPECITABINE [Suspect]
     Active Substance: CAPECITABINE
     Indication: Adenocarcinoma of colon
     Dosage: 1800.0 MG EVERY 12 H
     Dates: start: 20220425, end: 20220505
  3. PROTEIN [Concomitant]
     Active Substance: PROTEIN
     Indication: Adenocarcinoma of colon
     Dosage: 1.0 SACHET EVERY 24 H
     Dates: start: 20220719
  4. ONDANSETRON [Concomitant]
     Active Substance: ONDANSETRON
     Indication: Adenocarcinoma of colon
     Dosage: 4.0 MG EVERY 12 H,  EFG, 15 TABLETS
     Dates: start: 20220429
  5. ENOXAPARIN [Concomitant]
     Active Substance: ENOXAPARIN
     Indication: Adenocarcinoma of colon
     Dosage: 10,000 IU (100 MG)/1 ML IN PRE-FILLED?SYRINGE, 30 PRE-FILLED SYRINGES OF 1 ML, 100.0 MG AT DINNER
     Dates: start: 20220923

REACTIONS (3)
  - Asthenia [Recovered/Resolved]
  - Nausea [Recovered/Resolved]
  - Diarrhoea [Recovered/Resolved]

NARRATIVE: CASE EVENT DATE: 20220510
